FAERS Safety Report 10597502 (Version 1)
Quarter: 2014Q4

REPORT INFORMATION
  Report Type: Spontaneous
  Country: KR (occurrence: None)
  Receive Date: 20141119
  Receipt Date: 20141119
  Transmission Date: 20150529
  Serious: Yes (Death, Other)
  Sender: FDA-Public Use
  Company Number: KR-LHC-2014107

PATIENT
  Age: 76 Year
  Sex: Male

DRUGS (2)
  1. OXYGEN (GENERIC) (OXYGEN) (GAS FOR INHALATION) (VERUM) [Suspect]
     Active Substance: OXYGEN
     Indication: PNEUMONIA
     Dosage: INHALATION
  2. OXYGEN (GENERIC) (OXYGEN) (GAS FOR INHALATION) (VERUM) [Suspect]
     Active Substance: OXYGEN
     Indication: ACUTE RESPIRATORY DISTRESS SYNDROME
     Dosage: INHALATION

REACTIONS (4)
  - Thermal burn [None]
  - Procedural complication [None]
  - Multi-organ failure [None]
  - Procedural site reaction [None]
